FAERS Safety Report 4828831-4 (Version None)
Quarter: 2005Q4

REPORT INFORMATION
  Report Type: 
  Country: None (occurrence: None)
  Receive Date: 20051014
  Receipt Date: 20050721
  Transmission Date: 20060501
  Serious: No
  Sender: FDA-Public Use
  Company Number: 2005SP001259

PATIENT
  Age: 75 Year
  Sex: Female
  Weight: 53.978 kg

DRUGS (4)
  1. LUNESTA [Suspect]
     Indication: INSOMNIA
     Dosage: 2 MG; HS; ORAL
     Route: 048
     Dates: start: 20050503, end: 20050604
  2. ALPRAZOLAM [Concomitant]
  3. LEXAPRO [Concomitant]
  4. AMBIEN [Concomitant]

REACTIONS (3)
  - DRUG INEFFECTIVE [None]
  - MAJOR DEPRESSION [None]
  - MIDDLE INSOMNIA [None]
